FAERS Safety Report 9103685 (Version 2)
Quarter: 2013Q1

REPORT INFORMATION
  Report Type: Spontaneous
  Country: US (occurrence: US)
  Receive Date: 20130219
  Receipt Date: 20130313
  Transmission Date: 20140127
  Serious: Yes (Other)
  Sender: FDA-Public Use
  Company Number: US-BAYER-2013-018914

PATIENT
  Age: 35 Year
  Sex: Female
  Weight: 88.44 kg

DRUGS (1)
  1. MIRENA [Suspect]
     Indication: CONTRACEPTION
     Dosage: 20 MCG/24HR, CONT
     Route: 015
     Dates: start: 20120622, end: 20130201

REACTIONS (4)
  - Device expulsion [None]
  - Feeling abnormal [None]
  - Uterine haemorrhage [None]
  - Vaginal haemorrhage [None]
